FAERS Safety Report 4906364-4 (Version None)
Quarter: 2006Q1

REPORT INFORMATION
  Report Type: 
  Country: None (occurrence: None)
  Receive Date: 20060206
  Receipt Date: 20060125
  Transmission Date: 20060701
  Serious: Yes (Hospitalization)
  Sender: FDA-Public Use
  Company Number: 2006BI000309

PATIENT
  Age: 28 Year
  Sex: Female

DRUGS (1)
  1. AVONEX LIQUID [Suspect]
     Indication: MULTIPLE SCLEROSIS
     Dosage: IM
     Route: 030
     Dates: start: 20051201

REACTIONS (5)
  - ABASIA [None]
  - APHASIA [None]
  - DISEASE PROGRESSION [None]
  - IMMOBILE [None]
  - MULTIPLE SCLEROSIS [None]
